FAERS Safety Report 5819352-0 (Version None)
Quarter: 2008Q3

REPORT INFORMATION
  Report Type: 
  Country: None (occurrence: None)
  Receive Date: 20080723
  Receipt Date: 20080711
  Transmission Date: 20090109
  Serious: Yes (Other)
  Sender: FDA-Public Use
  Company Number: JP-ASTRAZENECA-2008AP03686

PATIENT
  Sex: Female

DRUGS (3)
  1. ARIMIDEX [Suspect]
     Indication: BREAST CANCER
     Route: 048
  2. ENDOXAN [Suspect]
     Dosage: DOSE UNKNOWN
     Route: 065
  3. FURTULON [Suspect]
     Dosage: DOSE UNKNOWN
     Route: 048

REACTIONS (1)
  - THROMBOCYTOPENIA [None]
